FAERS Safety Report 10741990 (Version 1)
Quarter: 2015Q1

REPORT INFORMATION
  Report Type: Spontaneous
  Country: US (occurrence: None)
  Receive Date: 20150123
  Receipt Date: 20150123
  Transmission Date: 20150721
  Serious: Yes (Life-Threatening)
  Sender: FDA-Public Use
  Company Number: None

PATIENT
  Age: 66 Year
  Sex: Female
  Weight: 47.63 kg

DRUGS (1)
  1. AMOXICILLIN/CLAVULANIC [Suspect]
     Active Substance: AMOXICILLIN\CLAVULANIC ACID
     Indication: SINUS DISORDER
     Dosage: 1 TAB EVERY 8 HRS FOR 10 DAYS 1 DAILY, 30 IN 10 DAYS
     Dates: start: 20141124, end: 20141203

REACTIONS (2)
  - Diarrhoea [None]
  - Colitis [None]

NARRATIVE: CASE EVENT DATE: 20141124
